FAERS Safety Report 8624076-0 (Version None)
Quarter: 2012Q3

REPORT INFORMATION
  Report Type: 
  Country: None (occurrence: None)
  Receive Date: 20120827
  Receipt Date: 20120809
  Transmission Date: 20120928
  Serious: Yes (Hospitalization, Other)
  Sender: FDA-Public Use
  Company Number: JP-009507513-2012SP018294

PATIENT

DRUGS (14)
  1. CONIEL [Concomitant]
     Dosage: 40 MG, QD
     Route: 048
  2. ANTIVIRAL (UNSPECIFIED) [Suspect]
     Indication: HEPATITIS C
     Dosage: 1500 MG, QD
     Route: 048
     Dates: start: 20120131, end: 20120316
  3. FAMOTIDINE [Concomitant]
     Dosage: 40 MG, QD
     Route: 048
  4. RIBAVIRIN [Suspect]
     Dosage: 400 MG, QD
     Route: 048
     Dates: start: 20120424, end: 20120521
  5. RIBAVIRIN [Suspect]
     Dosage: 500 MG, QD
     Route: 048
     Dates: start: 20120522
  6. RIBAVIRIN [Suspect]
     Dosage: 200 MG, QD
     Route: 048
     Dates: start: 20120321, end: 20120403
  7. TELAVIC [Suspect]
     Indication: HEPATITIS C
     Dosage: 1500 MG, QD
     Route: 048
     Dates: start: 20120131, end: 20120316
  8. RIBAVIRIN [Suspect]
     Indication: HEPATITIS C
     Dosage: 400 MG, QD
     Route: 048
     Dates: start: 20120131, end: 20120227
  9. RIBAVIRIN [Suspect]
     Dosage: 200 MG, QD
     Route: 048
     Dates: start: 20120228, end: 20120317
  10. RIBAVIRIN [Suspect]
     Dosage: 300 MG, QD
     Route: 048
     Dates: start: 20120404, end: 20120423
  11. PEG-INTRON [Suspect]
     Indication: HEPATITIS C
     Dosage: 1.5 MICROGRAM PER KILOGRAM, QW
     Route: 058
     Dates: start: 20120131, end: 20120315
  12. ALLOPURINOL [Concomitant]
     Indication: HYPERURICAEMIA
     Dosage: 200 MG, QD
     Route: 048
     Dates: start: 20120204
  13. CELESTAMINE (BETAMETHASONE (+) DEXCHLORPHENIRAMINE MALEATE (+) FLUPHEN [Concomitant]
     Dosage: 3 DF, QD
     Route: 048
     Dates: start: 20120316
  14. ISOSORBIDE DINITRATE [Concomitant]
     Dosage: 40 MG, QD
     Route: 048

REACTIONS (3)
  - ANAEMIA [None]
  - HAEMOLYTIC ANAEMIA [None]
  - RASH [None]
